FAERS Safety Report 10191898 (Version 2)
Quarter: 2014Q2

REPORT INFORMATION
  Report Type: Spontaneous
  Country: JP (occurrence: JP)
  Receive Date: 20140523
  Receipt Date: 20140623
  Transmission Date: 20141212
  Serious: Yes (Hospitalization)
  Sender: FDA-Public Use
  Company Number: JP-GLAXOSMITHKLINE-B0993649A

PATIENT
  Age: 33 Year
  Sex: Female

DRUGS (8)
  1. LAMICTAL [Suspect]
     Indication: DEPRESSION
     Dosage: 25MG ALTERNATE DAYS
     Route: 048
     Dates: start: 20110615
  2. LAMICTAL [Suspect]
     Indication: DEPRESSION
     Route: 048
     Dates: start: 20110803, end: 20140509
  3. DEPAKENE-R [Concomitant]
     Indication: MANIA
     Route: 048
     Dates: start: 20110615, end: 20140509
  4. HALCION [Concomitant]
     Route: 048
  5. SILECE [Concomitant]
     Route: 048
  6. SOLANAX [Concomitant]
     Route: 048
  7. SEROQUEL [Concomitant]
     Route: 048
  8. CARBAMAZEPINE [Concomitant]
     Route: 048
     Dates: end: 20131021

REACTIONS (34)
  - Mastitis [Recovered/Resolved]
  - Pyrexia [Recovered/Resolved]
  - Pharyngeal oedema [Recovered/Resolved]
  - Breast discomfort [Recovered/Resolved]
  - Metrorrhagia [Recovered/Resolved]
  - Weight increased [Recovered/Resolved]
  - Stomatitis [Recovered/Resolved]
  - Dysphonia [Recovered/Resolved]
  - Rhinorrhoea [Recovered/Resolved]
  - Sensation of foreign body [Recovered/Resolved]
  - Nausea [Recovered/Resolved]
  - Abdominal discomfort [Recovered/Resolved]
  - Back pain [Recovered/Resolved]
  - Nasopharyngitis [Recovered/Resolved]
  - Oropharyngeal pain [Recovered/Resolved]
  - Nasal discharge discolouration [Recovered/Resolved]
  - Decreased appetite [Recovered/Resolved]
  - Malaise [Recovered/Resolved]
  - Paraesthesia [Recovering/Resolving]
  - Sensation of foreign body [Recovered/Resolved]
  - Dizziness postural [Recovered/Resolved]
  - Dizziness [Recovered/Resolved]
  - Fall [Recovered/Resolved]
  - Arthralgia [Recovered/Resolved]
  - Oedema peripheral [Recovered/Resolved]
  - Rash [Recovered/Resolved]
  - Rash [Recovered/Resolved]
  - Erythema [Recovered/Resolved]
  - Fatigue [Recovered/Resolved]
  - Visual acuity reduced [Recovered/Resolved]
  - Photophobia [Recovered/Resolved]
  - Ocular hyperaemia [Recovered/Resolved]
  - Drug eruption [Recovered/Resolved]
  - Accidental overdose [Unknown]
